FAERS Safety Report 12542258 (Version 1)
Quarter: 2016Q3

REPORT INFORMATION
  Report Type: Spontaneous
  Country: US (occurrence: US)
  Receive Date: 20160708
  Receipt Date: 20160708
  Transmission Date: 20161109
  Serious: No
  Sender: FDA-Public Use
  Company Number: GXBR2016US002165

PATIENT

DRUGS (1)
  1. ISONIAZID TABLETS USP [Suspect]
     Active Substance: ISONIAZID
     Indication: EXTRAPULMONARY TUBERCULOSIS
     Dosage: UNK DF, UNK
     Route: 065

REACTIONS (1)
  - Liver function test increased [Unknown]
